FAERS Safety Report 12495229 (Version 1)
Quarter: 2016Q2

REPORT INFORMATION
  Report Type: Spontaneous
  Country: US (occurrence: None)
  Receive Date: 20160623
  Receipt Date: 20160623
  Transmission Date: 20160815
  Serious: Yes (Hospitalization)
  Sender: FDA-Public Use
  Company Number: None

PATIENT
  Age: 45 Year
  Sex: Male

DRUGS (12)
  1. DIPHENHYDRAMINE. [Concomitant]
     Active Substance: DIPHENHYDRAMINE
  2. AMOXICILLIN/CLAVULANATE [Concomitant]
     Active Substance: AMOXICILLIN\CLAVULANATE POTASSIUM
  3. AMPHOTERICIN B LIPOSOMAL [Suspect]
     Active Substance: AMPHOTERICIN B
     Indication: INFECTION
     Route: 042
     Dates: start: 20160405, end: 20160428
  4. AMLODIPINE [Concomitant]
     Active Substance: AMLODIPINE BESYLATE
  5. ONDANSETRON [Concomitant]
     Active Substance: ONDANSETRON
  6. SENNA [Concomitant]
     Active Substance: SENNA LEAF\SENNOSIDES\SENNOSIDES A AND B
  7. IBUPROFEN. [Concomitant]
     Active Substance: IBUPROFEN
  8. OXYCODONE-ACETAMINOPHEN [Concomitant]
     Active Substance: ACETAMINOPHEN\OXYCODONE HYDROCHLORIDE
  9. BISACODYL. [Concomitant]
     Active Substance: BISACODYL
  10. INSULIN [Concomitant]
     Active Substance: INSULIN NOS
  11. POTASSIUM [Concomitant]
     Active Substance: POTASSIUM
  12. DOCUSATE [Concomitant]
     Active Substance: DOCUSATE

REACTIONS (4)
  - Hyperkalaemia [None]
  - Hypomagnesaemia [None]
  - Oedema peripheral [None]
  - Vision blurred [None]

NARRATIVE: CASE EVENT DATE: 20160422
